FAERS Safety Report 19840597 (Version 5)
Quarter: 2022Q2

REPORT INFORMATION
  Report Type: Report from Study
  Country: CA (occurrence: CA)
  Receive Date: 20210915
  Receipt Date: 20220527
  Transmission Date: 20220721
  Serious: Yes (Other)
  Sender: FDA-Public Use
  Company Number: CA-TAKEDA-2021TUS044289

PATIENT
  Age: 5 Year
  Sex: Female

DRUGS (2)
  1. VEDOLIZUMAB [Suspect]
     Active Substance: VEDOLIZUMAB
     Indication: Colitis ulcerative
     Dosage: 300 MILLIGRAM
     Route: 042
     Dates: start: 20210615
  2. VEDOLIZUMAB [Suspect]
     Active Substance: VEDOLIZUMAB
     Dosage: 300 MILLIGRAM, Q6WEEKS
     Route: 042
     Dates: start: 202109

REACTIONS (7)
  - Haematochezia [Not Recovered/Not Resolved]
  - Blood iron decreased [Unknown]
  - Diarrhoea [Unknown]
  - Body temperature increased [Unknown]
  - Therapeutic response decreased [Unknown]
  - Drug level decreased [Unknown]
  - Off label use [Unknown]
